FAERS Safety Report 25774942 (Version 1)
Quarter: 2025Q3

REPORT INFORMATION
  Report Type: Report from Study
  Country: IN (occurrence: IN)
  Receive Date: 20250908
  Receipt Date: 20250908
  Transmission Date: 20251020
  Serious: Yes (Other)
  Sender: ELI LILLY AND COMPANY
  Company Number: IN-ELI_LILLY_AND_COMPANY-IN202508028009

PATIENT
  Age: 10 Year
  Sex: Female

DRUGS (2)
  1. OLUMIANT [Suspect]
     Active Substance: BARICITINIB
     Indication: Gene mutation
     Dosage: 0.08 MG/KG, DAILY
     Route: 065
  2. OLUMIANT [Suspect]
     Active Substance: BARICITINIB
     Indication: Alopecia areata
     Dosage: 0.1 MG/KG, DAILY
     Route: 065

REACTIONS (6)
  - Lymphopenia [Not Recovered/Not Resolved]
  - Cytomegalovirus viraemia [Unknown]
  - Hepatitis [Unknown]
  - Pneumonia [Unknown]
  - Pulmonary tuberculosis [Unknown]
  - Off label use [Unknown]
